FAERS Safety Report 14667866 (Version 1)
Quarter: 2018Q1

REPORT INFORMATION
  Report Type: Spontaneous
  Country: US (occurrence: US)
  Receive Date: 20180322
  Receipt Date: 20180322
  Transmission Date: 20180509
  Serious: Yes (Death, Hospitalization, Other)
  Sender: FDA-Public Use
  Company Number: US-BAYER-2018-049849

PATIENT
  Sex: Male

DRUGS (1)
  1. BAYER ASPIRIN [Suspect]
     Active Substance: ASPIRIN
     Indication: PAIN
     Route: 048

REACTIONS (4)
  - Hypocoagulable state [None]
  - Death [Fatal]
  - Epistaxis [None]
  - Epistaxis [Recovered/Resolved]
